FAERS Safety Report 14211746 (Version 1)
Quarter: 2017Q4

REPORT INFORMATION
  Report Type: Spontaneous
  Country: US (occurrence: US)
  Receive Date: 20171121
  Receipt Date: 20171121
  Transmission Date: 20180321
  Serious: Yes (Disabling)
  Sender: FDA-Public Use
  Company Number: None

PATIENT
  Age: 60 Year
  Sex: Female
  Weight: 60.75 kg

DRUGS (6)
  1. AQUAPHOR OINTMENT [Concomitant]
     Active Substance: ALCOHOL\LIGHT MINERAL OIL\PETROLATUM
  2. COCONUT OIL [Concomitant]
     Active Substance: COCONUT OIL
  3. FLUOCININ AND OTHERS [Suspect]
     Active Substance: UNSPECIFIED INGREDIENT
  4. FLUOCINOLONE ACETONIDE. [Suspect]
     Active Substance: FLUOCINOLONE ACETONIDE
  5. SHEA BUTTER [Concomitant]
     Active Substance: SHEA BUTTER
  6. FLUOCINONIDE. [Suspect]
     Active Substance: FLUOCINONIDE
     Indication: ECZEMA
     Dosage: ?          QUANTITY:1 APPLICATION TO SKI;?
     Route: 061
     Dates: end: 20170820

REACTIONS (3)
  - Pruritus [None]
  - Rash [None]
  - Erythema [None]

NARRATIVE: CASE EVENT DATE: 20170820
